FAERS Safety Report 5385887-0 (Version None)
Quarter: 2007Q3

REPORT INFORMATION
  Report Type: 
  Country: None (occurrence: None)
  Receive Date: 20070712
  Receipt Date: 20070703
  Transmission Date: 20080115
  Serious: Yes (Death, Hospitalization)
  Sender: FDA-Public Use
  Company Number: GR-ABBOTT-07P-066-0373395-00

PATIENT
  Age: 65 Year
  Sex: Male
  Weight: 63.5 kg

DRUGS (11)
  1. ZEMPLAR [Suspect]
     Indication: HYPERPARATHYROIDISM SECONDARY
     Route: 042
     Dates: start: 20070314, end: 20070702
  2. EPOETIN BETA [Concomitant]
     Indication: ANAEMIA
     Route: 042
     Dates: start: 20020101, end: 20070702
  3. LEVOCARNITINE [Concomitant]
     Indication: CARNITINE DEFICIENCY
     Route: 042
     Dates: start: 19931208, end: 20070702
  4. LEVOCARNITINE [Concomitant]
     Indication: MUSCLE SPASMS
  5. CERNEVIT-12 [Concomitant]
     Indication: MULTI-VITAMIN DEFICIENCY
     Route: 042
     Dates: start: 20070101, end: 20070702
  6. BUFLOMEDIL HYDROCHLORIDE [Concomitant]
     Indication: PERIPHERAL VASCULAR DISORDER
     Route: 042
     Dates: start: 20060401, end: 20070702
  7. ESOMEPRAZOLE MAGNESIUM [Concomitant]
     Indication: GASTRITIS
     Route: 048
     Dates: start: 20060201, end: 20070702
  8. SEVELAMER [Concomitant]
     Indication: HYPERTENSION
     Route: 048
     Dates: start: 20051001, end: 20070702
  9. CALCIUM CARBONATE [Concomitant]
     Indication: HYPERPHOSPHATAEMIA
     Route: 048
     Dates: start: 20020401, end: 20070702
  10. CLOPIDOGREL BISULFATE [Concomitant]
     Indication: PERIPHERAL VASCULAR DISORDER
     Route: 048
     Dates: start: 20070101, end: 20070702
  11. ALUMINIUM HYDROXIDE GEL, DRIED [Concomitant]
     Indication: HYPERPHOSPHATAEMIA
     Route: 048
     Dates: start: 20060201, end: 20070702

REACTIONS (2)
  - ACUTE MYOCARDIAL INFARCTION [None]
  - RESPIRATORY TRACT INFECTION [None]
